FAERS Safety Report 6585349-9 (Version None)
Quarter: 2010Q1

REPORT INFORMATION
  Report Type: 
  Country: None (occurrence: None)
  Receive Date: 20100201
  Receipt Date: 20090406
  Transmission Date: 20100710
  Serious: Yes (Other)
  Sender: FDA-Public Use
  Company Number: 8044608

PATIENT
  Sex: Male

DRUGS (2)
  1. KEPPRA [Suspect]
     Dates: start: 20071201, end: 20081101
  2. KEPPRA [Suspect]

REACTIONS (1)
  - CONVULSION [None]
